FAERS Safety Report 23457887 (Version 1)
Quarter: 2024Q1

REPORT INFORMATION
  Report Type: Spontaneous
  Country: US (occurrence: None)
  Receive Date: 20240130
  Receipt Date: 20240130
  Transmission Date: 20240410
  Serious: No
  Sender: FDA-Public Use
  Company Number: None

PATIENT
  Age: 72 Year
  Sex: Male

DRUGS (11)
  1. TACROLIMUS [Suspect]
     Active Substance: TACROLIMUS
     Indication: Renal transplant
     Dosage: FREQUENCY : DAILY;?
     Route: 048
     Dates: start: 20200131
  2. TACROLIMUS [Suspect]
     Active Substance: TACROLIMUS
     Indication: Renal transplant
     Route: 048
     Dates: start: 20230519
  3. LANTUS [Concomitant]
     Active Substance: INSULIN GLARGINE
  4. CARTIA [Concomitant]
  5. HYDRALAZINE [Concomitant]
     Active Substance: HYDRALAZINE HYDROCHLORIDE
  6. LISINOPRIL [Concomitant]
     Active Substance: LISINOPRIL
  7. CLONIDINE [Concomitant]
     Active Substance: CLONIDINE
  8. METOLAZONE [Concomitant]
     Active Substance: METOLAZONE
  9. VITAMIN D [Concomitant]
     Active Substance: VITAMIN D NOS
  10. WALGREENS SYR/NDL [Concomitant]
  11. FUROSEMIDE [Concomitant]
     Active Substance: FUROSEMIDE

REACTIONS (1)
  - Death [None]
